FAERS Safety Report 19471862 (Version 1)
Quarter: 2021Q2

REPORT INFORMATION
  Report Type: Spontaneous
  Country: US (occurrence: US)
  Receive Date: 20210629
  Receipt Date: 20210629
  Transmission Date: 20210717
  Serious: Yes (Hospitalization)
  Sender: FDA-Public Use
  Company Number: None

PATIENT
  Age: 13 Year
  Sex: Male
  Weight: 80.8 kg

DRUGS (5)
  1. METHOTREXATE. [Suspect]
     Active Substance: METHOTREXATE
     Dates: end: 20210524
  2. VINCRISTINE SULFATE. [Suspect]
     Active Substance: VINCRISTINE SULFATE
     Dates: end: 20210524
  3. CYTARABINE. [Suspect]
     Active Substance: CYTARABINE
     Dates: end: 20210617
  4. CYCLOPHOSPHAMIDE. [Suspect]
     Active Substance: CYCLOPHOSPHAMIDE
     Dates: end: 20210607
  5. MERCAPTOPURINE. [Suspect]
     Active Substance: MERCAPTOPURINE
     Dates: end: 20210614

REACTIONS (19)
  - Weight increased [None]
  - Pyrexia [None]
  - International normalised ratio increased [None]
  - Breakthrough pain [None]
  - White blood cell count decreased [None]
  - Haemoglobin decreased [None]
  - Transfusion [None]
  - Pancreatitis necrotising [None]
  - Blood albumin decreased [None]
  - Intra-abdominal haemorrhage [None]
  - Splenic vein thrombosis [None]
  - Hypoxia [None]
  - Pleural effusion [None]
  - Atelectasis [None]
  - Hepatic function abnormal [None]
  - Pancreatitis acute [None]
  - Blood bilirubin increased [None]
  - Fluid retention [None]
  - Respiratory failure [None]

NARRATIVE: CASE EVENT DATE: 20210618
